FAERS Safety Report 9180003 (Version 1)
Quarter: 2013Q1

REPORT INFORMATION
  Report Type: Spontaneous
  Country: TR (occurrence: TR)
  Receive Date: 20130321
  Receipt Date: 20130321
  Transmission Date: 20140127
  Serious: Yes (Hospitalization)
  Sender: FDA-Public Use
  Company Number: TR-VERTEX PHARMACEUTICALS INC.-2013-003945

PATIENT
  Age: 63 Year
  Sex: Male

DRUGS (2)
  1. INCIVO [Suspect]
     Indication: HEPATITIS C
     Dosage: UNK
     Route: 048
     Dates: start: 201301
  2. INCIVO [Suspect]
     Indication: CHRONIC HEPATITIS C

REACTIONS (2)
  - Swelling face [Recovered/Resolved]
  - Skin exfoliation [Unknown]
